FAERS Safety Report 6384127-3 (Version None)
Quarter: 2009Q4

REPORT INFORMATION
  Report Type: 
  Country: None (occurrence: None)
  Receive Date: 20091001
  Receipt Date: 20090917
  Transmission Date: 20100525
  Serious: Yes (Disabling)
  Sender: FDA-Public Use
  Company Number: US-KINGPHARMUSA00001-K200901185

PATIENT
  Sex: Female
  Weight: 117 kg

DRUGS (3)
  1. THROMBIN NOS [Suspect]
     Indication: OPERATIVE HAEMORRHAGE
     Dosage: 10000 IU, SINGLE
     Route: 061
     Dates: start: 20090814, end: 20090814
  2. VICODIN [Concomitant]
     Indication: BACK PAIN
     Dosage: 75750 UNK, PRN
     Route: 048
     Dates: start: 20090815
  3. PERCOCET [Concomitant]
     Indication: BACK PAIN
     Dosage: UNK
     Route: 048
     Dates: start: 20090715, end: 20090826

REACTIONS (5)
  - CONDITION AGGRAVATED [None]
  - INTERVERTEBRAL DISC PROTRUSION [None]
  - PAIN [None]
  - RADICULOPATHY [None]
  - SURGICAL FAILURE [None]
